FAERS Safety Report 13760648 (Version 1)
Quarter: 2017Q3

REPORT INFORMATION
  Report Type: Spontaneous
  Country: US (occurrence: US)
  Receive Date: 20170717
  Receipt Date: 20170717
  Transmission Date: 20171127
  Serious: No
  Sender: FDA-Public Use
  Company Number: US-ENDO PHARMACEUTICALS INC-2016SCPR015831

PATIENT

DRUGS (3)
  1. COLY-MYCIN S [Suspect]
     Active Substance: COLISTIN SULFATE\HYDROCORTISONE ACETATE\NEOMYCIN SULFATE\THONZONIUM BROMIDE
     Dosage: 2 DROPS, TID
     Route: 001
     Dates: start: 20160715, end: 20160717
  2. COLY-MYCIN S [Suspect]
     Active Substance: COLISTIN SULFATE\HYDROCORTISONE ACETATE\NEOMYCIN SULFATE\THONZONIUM BROMIDE
     Indication: EAR INFECTION
     Dosage: UNK, UNKNOWN
     Route: 001
     Dates: start: 1978
  3. COLY-MYCIN S [Suspect]
     Active Substance: COLISTIN SULFATE\HYDROCORTISONE ACETATE\NEOMYCIN SULFATE\THONZONIUM BROMIDE
     Dosage: 2 DROPS, TID
     Route: 001
     Dates: start: 20160627, end: 20160703

REACTIONS (9)
  - Tongue discomfort [Recovered/Resolved]
  - Retching [Recovered/Resolved]
  - Vomiting [Recovered/Resolved]
  - Medication error [Recovered/Resolved]
  - Tooth disorder [Not Recovered/Not Resolved]
  - Throat irritation [Recovered/Resolved]
  - Sensitivity of teeth [Not Recovered/Not Resolved]
  - Tooth injury [Not Recovered/Not Resolved]
  - Feeling abnormal [Recovered/Resolved]

NARRATIVE: CASE EVENT DATE: 20160627
